FAERS Safety Report 21058935 (Version 1)
Quarter: 2022Q3

REPORT INFORMATION
  Report Type: Other
  Country: US (occurrence: US)
  Receive Date: 20220708
  Receipt Date: 20220708
  Transmission Date: 20221026
  Serious: Yes (Hospitalization)
  Sender: FDA-Public Use
  Company Number: US-NEUROCRINE BIOSCIENCES INC.-2022NBI04334

PATIENT

DRUGS (1)
  1. INGREZZA [Suspect]
     Active Substance: VALBENAZINE
     Indication: Tardive dyskinesia
     Dosage: 40 MILLIGRAM, QD
     Route: 048
     Dates: start: 20220611

REACTIONS (6)
  - Eye swelling [Unknown]
  - Peripheral swelling [Unknown]
  - Confusional state [Unknown]
  - Dyspnoea [Unknown]
  - Lip swelling [Unknown]
  - Rash pruritic [Unknown]

NARRATIVE: CASE EVENT DATE: 20220601
